FAERS Safety Report 8979709 (Version 1)
Quarter: 2012Q4

REPORT INFORMATION
  Report Type: 
  Country: US (occurrence: US)
  Receive Date: 20121221
  Receipt Date: 20121221
  Transmission Date: 20130627
  Serious: Yes (Hospitalization, Other)
  Sender: FDA-Public Use
  Company Number: US-TEVA-377013USA

PATIENT
  Age: 65 Year
  Sex: Female

DRUGS (2)
  1. METOPROLOL [Suspect]
     Route: 065
  2. CARVEDILOL [Concomitant]
     Route: 065

REACTIONS (2)
  - Pustular psoriasis [Recovered/Resolved]
  - Drug hypersensitivity [Recovered/Resolved]
